FAERS Safety Report 16012365 (Version 1)
Quarter: 2019Q1

REPORT INFORMATION
  Report Type: Spontaneous
  Country: US (occurrence: US)
  Receive Date: 20190130
  Receipt Date: 20190130
  Transmission Date: 20190418
  Serious: No
  Sender: FDA-Public Use
  Company Number: None

PATIENT

DRUGS (2)
  1. MULTIVITAMINS [Concomitant]
     Active Substance: VITAMINS
  2. BACTRIM DS [Suspect]
     Active Substance: SULFAMETHOXAZOLE\TRIMETHOPRIM
     Indication: LOCALISED INFECTION
     Dosage: ?          QUANTITY:800-160MG;?
     Route: 048
     Dates: start: 20181116, end: 20181123

REACTIONS (6)
  - Pain [None]
  - Throat tightness [None]
  - Pyrexia [None]
  - Insomnia [None]
  - Oral disorder [None]
  - Rash generalised [None]

NARRATIVE: CASE EVENT DATE: 20181116
